FAERS Safety Report 8094654-9 (Version None)
Quarter: 2012Q1

REPORT INFORMATION
  Report Type: 
  Country: None (occurrence: None)
  Receive Date: 20120131
  Receipt Date: 20111128
  Transmission Date: 20120608
  Serious: No
  Sender: FDA-Public Use
  Company Number: US-ABBOTT-11P-163-0877547-00

PATIENT
  Age: 2 Year
  Sex: Male

DRUGS (1)
  1. CREON [Suspect]
     Indication: PRODUCT USED FOR UNKNOWN INDICATION
     Dosage: 3 WITH MEALS, 2 WITH SNACKS

REACTIONS (2)
  - CONSTIPATION [None]
  - FLATULENCE [None]
